FAERS Safety Report 6031824-5 (Version None)
Quarter: 2009Q1

REPORT INFORMATION
  Report Type: 
  Country: None (occurrence: None)
  Receive Date: 20090108
  Receipt Date: 20081230
  Transmission Date: 20090719
  Serious: Yes (Hospitalization)
  Sender: FDA-Public Use
  Company Number: US-BIOGENIDEC-2008BI018711

PATIENT
  Age: 41 Year
  Sex: Female

DRUGS (1)
  1. TYSABRI [Suspect]
     Indication: MULTIPLE SCLEROSIS
     Route: 042
     Dates: start: 20080428

REACTIONS (6)
  - CHEST PAIN [None]
  - DEHYDRATION [None]
  - GAIT DISTURBANCE [None]
  - HYPOTENSION [None]
  - INFUSION RELATED REACTION [None]
  - SYNCOPE [None]
